FAERS Safety Report 8776492 (Version 2)
Quarter: 2012Q4

REPORT INFORMATION
  Report Type: Report from Study
  Country: CA (occurrence: CA)
  Receive Date: 20120910
  Receipt Date: 20121010
  Transmission Date: 20130627
  Serious: Yes (Other)
  Sender: FDA-Public Use
  Company Number: CA-JNJFOC-20120901195

PATIENT
  Age: 48 Year
  Sex: Female
  Weight: 39.3 kg

DRUGS (14)
  1. REMICADE [Suspect]
     Indication: CROHN^S DISEASE
     Route: 042
     Dates: start: 20120928
  2. REMICADE [Suspect]
     Indication: CROHN^S DISEASE
     Route: 042
     Dates: start: 20120427
  3. REMICADE [Suspect]
     Indication: CROHN^S DISEASE
     Route: 042
     Dates: start: 20120831
  4. MORPHINE [Concomitant]
     Route: 065
  5. MULTIVITAMINS [Concomitant]
     Route: 065
  6. IMURAN [Concomitant]
     Route: 065
  7. CALCIUM [Concomitant]
     Route: 065
  8. ACTINAL [Concomitant]
     Route: 065
  9. GRAVOL [Concomitant]
     Indication: PREMEDICATION
     Route: 042
     Dates: start: 20120831
  10. GRAVOL [Concomitant]
     Indication: PREMEDICATION
     Route: 042
     Dates: start: 20120924
  11. SOLU-CORTEF [Concomitant]
     Indication: PREMEDICATION
     Route: 042
     Dates: start: 20120924
  12. SOLU-CORTEF [Concomitant]
     Indication: PREMEDICATION
     Route: 042
     Dates: start: 20120831
  13. MAGNESIUM [Concomitant]
     Route: 065
  14. VITAMIN D3 [Concomitant]
     Route: 065

REACTIONS (7)
  - Hypotension [Recovered/Resolved]
  - Infusion related reaction [Recovered/Resolved]
  - Heart rate increased [Recovered/Resolved]
  - Flushing [Recovered/Resolved]
  - Chest discomfort [Recovered/Resolved]
  - Nausea [Recovered/Resolved]
  - Oropharyngeal pain [Recovered/Resolved]
